FAERS Safety Report 6429781-2 (Version None)
Quarter: 2009Q4

REPORT INFORMATION
  Report Type: 
  Country: None (occurrence: None)
  Receive Date: 20091106
  Receipt Date: 20091022
  Transmission Date: 20100525
  Serious: Yes (Hospitalization, Other)
  Sender: FDA-Public Use
  Company Number: PHHY2009DE38142

PATIENT
  Sex: Male
  Weight: 105 kg

DRUGS (2)
  1. ALISKIREN ALI+ [Suspect]
     Indication: HYPERTENSION
     Dosage: UNK
     Dates: start: 20081110
  2. BETA BLOCKING AGENTS [Concomitant]

REACTIONS (5)
  - ANGINA PECTORIS [None]
  - ARTERIOGRAM CORONARY [None]
  - CARDIAC VENTRICULOGRAM [None]
  - CATHETERISATION CARDIAC [None]
  - CORONARY ARTERY DISEASE [None]
